FAERS Safety Report 18137289 (Version 2)
Quarter: 2020Q3

REPORT INFORMATION
  Report Type: Spontaneous
  Country: CH (occurrence: CH)
  Receive Date: 20200812
  Receipt Date: 20200911
  Transmission Date: 20201103
  Serious: Yes (Hospitalization)
  Sender: FDA-Public Use
  Company Number: CH-TEVA-2020-CH-1814167

PATIENT
  Age: 47 Year
  Sex: Male

DRUGS (1)
  1. FILGRASTIM TEVA [Suspect]
     Active Substance: FILGRASTIM
     Indication: STEM CELL DONOR
     Route: 058
     Dates: start: 20200220, end: 20200224

REACTIONS (1)
  - Cerebral venous thrombosis [Recovered/Resolved]

NARRATIVE: CASE EVENT DATE: 20200717
